FAERS Safety Report 7750296-3 (Version None)
Quarter: 2011Q3

REPORT INFORMATION
  Report Type: 
  Country: None (occurrence: None)
  Receive Date: 20110914
  Receipt Date: 20110901
  Transmission Date: 20111222
  Serious: Yes (Hospitalization, Other)
  Sender: FDA-Public Use
  Company Number: US-ELI_LILLY_AND_COMPANY-US201007007035

PATIENT
  Sex: Female

DRUGS (10)
  1. FORTEO [Suspect]
     Indication: OSTEOPOROSIS
     Dosage: 20 UG, QD
     Route: 065
     Dates: start: 20100601
  2. FORTEO [Suspect]
     Dosage: 20 UG, QD
     Route: 065
  3. SIMVASTATIN [Concomitant]
     Dosage: 40 MG, QD
  4. TRAMADOL HCL [Concomitant]
     Indication: PAIN
  5. FORTEO [Suspect]
     Dosage: 20 UG, QD
     Route: 065
  6. FOLGARD [Concomitant]
     Dosage: 2 DF, UNK
  7. LISINOPRIL HCT                     /01613901/ [Concomitant]
     Dosage: 1 DF, QD
  8. METOCLOPRAMIDE [Concomitant]
     Dosage: 5 MG, QD
  9. PAROXETINE HCL [Concomitant]
  10. OMEPRAZOLE [Concomitant]
     Indication: BARRETT'S OESOPHAGUS

REACTIONS (9)
  - SURGERY [None]
  - ARTHRITIS [None]
  - DIZZINESS [None]
  - ARTHRALGIA [None]
  - INJECTION SITE HAEMATOMA [None]
  - NAUSEA [None]
  - PAIN IN EXTREMITY [None]
  - BACK PAIN [None]
  - CONSTIPATION [None]
